FAERS Safety Report 5898856-9 (Version None)
Quarter: 2008Q3

REPORT INFORMATION
  Report Type: 
  Country: None (occurrence: None)
  Receive Date: 20080925
  Receipt Date: 20080818
  Transmission Date: 20090109
  Serious: Yes (Death, Hospitalization)
  Sender: FDA-Public Use
  Company Number: JP-BRISTOL-MYERS SQUIBB COMPANY-14027346

PATIENT
  Age: 6 Year
  Sex: Male

DRUGS (1)
  1. ENDOXAN [Suspect]
     Indication: RHABDOMYOSARCOMA
     Dates: start: 20020101

REACTIONS (3)
  - CARDIAC ARREST [None]
  - INTERSTITIAL LUNG DISEASE [None]
  - RESPIRATORY ARREST [None]
